FAERS Safety Report 21611539 (Version 1)
Quarter: 2022Q4

REPORT INFORMATION
  Report Type: Spontaneous
  Country: US (occurrence: None)
  Receive Date: 20221117
  Receipt Date: 20221117
  Transmission Date: 20230113
  Serious: Yes (Death, Hospitalization)
  Sender: FDA-Public Use
  Company Number: None

PATIENT
  Age: 11 Year
  Sex: Male
  Weight: 57.4 kg

DRUGS (5)
  1. CYTARABINE [Suspect]
     Active Substance: CYTARABINE
     Dates: end: 20221104
  2. DAUNORUBICIN [Suspect]
     Active Substance: DAUNORUBICIN
     Dates: end: 20221028
  3. METHOTREXATE [Suspect]
     Active Substance: METHOTREXATE
  4. ONCASPAR [Suspect]
     Active Substance: PEGASPARGASE
     Dates: end: 20221025
  5. PREDNISOLONE [Suspect]
     Active Substance: PREDNISOLONE
     Dates: end: 20221103

REACTIONS (22)
  - Tumour lysis syndrome [None]
  - Leukaemic infiltration renal [None]
  - Hypertension [None]
  - Seizure [None]
  - Posterior reversible encephalopathy syndrome [None]
  - Pain in extremity [None]
  - Magnesium deficiency [None]
  - Fall [None]
  - Head injury [None]
  - Haematoma [None]
  - Central nervous system leukaemia [None]
  - Jaundice cholestatic [None]
  - Hepatitis [None]
  - Hyperglycaemia [None]
  - Muscle twitching [None]
  - Tremor [None]
  - Subdural haemorrhage [None]
  - Brain oedema [None]
  - Cerebral venous sinus thrombosis [None]
  - Blood pressure decreased [None]
  - Heart rate decreased [None]
  - Haemophagocytic lymphohistiocytosis [None]

NARRATIVE: CASE EVENT DATE: 20221112
